FAERS Safety Report 16003516 (Version 2)
Quarter: 2022Q1

REPORT INFORMATION
  Report Type: Spontaneous
  Country: NL (occurrence: NL)
  Receive Date: 20190226
  Receipt Date: 20220216
  Transmission Date: 20220423
  Serious: Yes (Hospitalization)
  Sender: FDA-Public Use
  Company Number: NL-AUROBINDO-AUR-APL-2019-009108

PATIENT
  Age: 73 Year
  Sex: Male
  Weight: 80 kg

DRUGS (6)
  1. AMLODIPINE [Suspect]
     Active Substance: AMLODIPINE BESYLATE
     Indication: Hypertension
     Dosage: 10 MILLIGRAM, ONCE A DAY (1.D)
     Route: 048
     Dates: start: 19880504
  2. METOPROLOL [Suspect]
     Active Substance: METOPROLOL
     Indication: Prophylaxis
     Dosage: 25 MILLIGRAM, ONCE A DAY (1X PER DAG)
     Route: 048
     Dates: start: 20150107
  3. ASPIRIN [Concomitant]
     Active Substance: ASPIRIN
     Indication: Product used for unknown indication
     Dosage: 80 MILLIGRAM, ONCE A DAY (1.D)
     Route: 065
  4. GLICLAZIDE [Concomitant]
     Active Substance: GLICLAZIDE
     Indication: Product used for unknown indication
     Dosage: 30 MILLIGRAM, ONCE A DAY (1.D.)
     Route: 065
  5. METFORMIN HYDROCHLORIDE [Concomitant]
     Active Substance: METFORMIN HYDROCHLORIDE
     Indication: Product used for unknown indication
     Dosage: 500 MILLIGRAM, TWO TIMES A DAY (2.D)
     Route: 065
  6. NITROLINGUAL [Concomitant]
     Active Substance: NITROGLYCERIN
     Indication: Product used for unknown indication
     Dosage: UNK
     Route: 065

REACTIONS (5)
  - Peripheral coldness [Not Recovered/Not Resolved]
  - Muscle spasms [Unknown]
  - Oedema peripheral [Not Recovered/Not Resolved]
  - Blood glucose increased [Unknown]
  - Erectile dysfunction [Not Recovered/Not Resolved]

NARRATIVE: CASE EVENT DATE: 20150120
